FAERS Safety Report 20933390 (Version 1)
Quarter: 2022Q2

REPORT INFORMATION
  Report Type: Spontaneous
  Country: US (occurrence: US)
  Receive Date: 20220608
  Receipt Date: 20220608
  Transmission Date: 20220721
  Serious: Yes (Other)
  Sender: FDA-Public Use
  Company Number: US-PFIZER INC-202200797882

PATIENT
  Age: 77 Year
  Sex: Female
  Weight: 73.48 kg

DRUGS (2)
  1. PAXLOVID [Interacting]
     Active Substance: NIRMATRELVIR\RITONAVIR
     Indication: COVID-19 treatment
     Dosage: [PF-07321332 300 MG]/[RITONAVIR 100 MG]; 2X/DAY
     Dates: start: 2022, end: 20220602
  2. CARBAMAZEPINE [Interacting]
     Active Substance: CARBAMAZEPINE
     Indication: Seizure
     Dosage: 500 MG, 1X/DAY (500MG A DAY; EACH PILLS IS 100MG; TWO PILLS IN THE MORNING AND 3 PILLS AT NIGHT)
     Dates: start: 2010

REACTIONS (6)
  - Choking [Unknown]
  - Head discomfort [Recovered/Resolved]
  - Cough [Unknown]
  - Dyspnoea [Unknown]
  - Drug interaction [Unknown]
  - Contraindicated product administered [Unknown]

NARRATIVE: CASE EVENT DATE: 20220101
